FAERS Safety Report 7065893-0 (Version None)
Quarter: 2010Q4

REPORT INFORMATION
  Report Type: 
  Country: None (occurrence: None)
  Receive Date: 20101027
  Receipt Date: 20101020
  Transmission Date: 20110411
  Serious: Yes (Death, Life-Threatening, Other)
  Sender: FDA-Public Use
  Company Number: JP-ABBOTT-10P-087-0679591-00

PATIENT
  Age: 33 Year
  Sex: Female

DRUGS (25)
  1. DEPAKENE [Suspect]
     Indication: DEPRESSION
  2. DEPAKENE [Suspect]
     Indication: INSOMNIA
     Route: 048
     Dates: start: 20100915, end: 20100915
  3. DEPAKENE [Suspect]
     Indication: SUICIDE ATTEMPT
  4. EURODIN [Suspect]
     Indication: DEPRESSION
     Route: 048
  5. EURODIN [Suspect]
     Indication: INSOMNIA
     Route: 048
     Dates: start: 20100915, end: 20100915
  6. EURODIN [Suspect]
     Indication: SUICIDE ATTEMPT
  7. CONSTAN [Suspect]
     Indication: SUICIDE ATTEMPT
     Route: 048
  8. CONSTAN [Suspect]
     Indication: DEPRESSION
     Route: 048
     Dates: start: 20100915, end: 20100915
  9. DEPROMEL [Suspect]
     Indication: DEPRESSION
     Route: 048
  10. DEPROMEL [Suspect]
     Indication: INSOMNIA
     Route: 048
     Dates: start: 20100915, end: 20100915
  11. DEPROMEL [Suspect]
     Indication: SUICIDE ATTEMPT
  12. LENDORMIN [Suspect]
     Indication: DEPRESSION
     Route: 048
  13. LENDORMIN [Suspect]
     Indication: INSOMNIA
     Route: 048
     Dates: start: 20100915, end: 20100915
  14. LENDORMIN [Suspect]
     Indication: SUICIDE ATTEMPT
  15. ROHYPNOL [Suspect]
     Indication: DEPRESSION
     Route: 048
  16. ROHYPNOL [Suspect]
     Indication: INSOMNIA
     Route: 048
     Dates: start: 20100915, end: 20100915
  17. ROHYPNOL [Suspect]
     Indication: SUICIDE ATTEMPT
  18. DEPAS [Suspect]
     Indication: DEPRESSION
     Route: 048
  19. DEPAS [Suspect]
     Indication: INSOMNIA
     Route: 048
     Dates: start: 20100915, end: 20100915
  20. DEPAS [Suspect]
     Indication: SUICIDE ATTEMPT
  21. MYSLEE [Suspect]
     Indication: DEPRESSION
     Route: 048
  22. MYSLEE [Suspect]
     Indication: INSOMNIA
     Route: 048
     Dates: start: 20100915, end: 20100915
  23. MYSLEE [Suspect]
     Indication: SUICIDE ATTEMPT
  24. PREDNISOLONE [Concomitant]
     Indication: SYSTEMIC LUPUS ERYTHEMATOSUS
     Route: 048
  25. PREDNISOLONE [Concomitant]
     Route: 048
     Dates: start: 20100915, end: 20100915

REACTIONS (8)
  - AGRANULOCYTOSIS [None]
  - ALTERED STATE OF CONSCIOUSNESS [None]
  - DISSEMINATED INTRAVASCULAR COAGULATION [None]
  - MULTIPLE DRUG OVERDOSE INTENTIONAL [None]
  - PANCYTOPENIA [None]
  - RENAL FAILURE [None]
  - RESPIRATORY ARREST [None]
  - SEPSIS [None]
